FAERS Safety Report 5572085-0 (Version None)
Quarter: 2007Q4

REPORT INFORMATION
  Report Type: 
  Country: None (occurrence: None)
  Receive Date: 20071221
  Receipt Date: 20071211
  Transmission Date: 20080405
  Serious: Yes (Other)
  Sender: FDA-Public Use
  Company Number: SE-PFIZER INC-2007088203

PATIENT
  Sex: Male
  Weight: 70 kg

DRUGS (1)
  1. XALATAN [Suspect]
     Indication: GLAUCOMA
     Dates: start: 20070501, end: 20071001

REACTIONS (2)
  - MACULAR OEDEMA [None]
  - VISUAL DISTURBANCE [None]
